FAERS Safety Report 15661278 (Version 2)
Quarter: 2018Q4

REPORT INFORMATION
  Report Type: Spontaneous
  Country: US (occurrence: US)
  Receive Date: 20181127
  Receipt Date: 20181228
  Transmission Date: 20190205
  Serious: Yes (Other)
  Sender: FDA-Public Use
  Company Number: US-DSJP-DSU-2017-107503

PATIENT

DRUGS (4)
  1. BENICAR HCT [Suspect]
     Active Substance: HYDROCHLOROTHIAZIDE\OLMESARTAN MEDOXOMIL
     Indication: PRODUCT USED FOR UNKNOWN INDICATION
     Dosage: 40-25 MG, QD
     Route: 048
     Dates: start: 20060101
  2. BENICAR HCT [Suspect]
     Active Substance: HYDROCHLOROTHIAZIDE\OLMESARTAN MEDOXOMIL
     Dosage: 20-12.5 MG, UNK
  3. BENICAR [Suspect]
     Active Substance: OLMESARTAN MEDOXOMIL
     Indication: HYPERTENSION
     Dosage: 20 MG, QD
     Route: 048
  4. BENICAR [Suspect]
     Active Substance: OLMESARTAN MEDOXOMIL
     Dosage: 40 MG, QD

REACTIONS (11)
  - Irritable bowel syndrome [Unknown]
  - Chronic kidney disease [Unknown]
  - Renal failure [Unknown]
  - Dumping syndrome [Unknown]
  - Barrett^s oesophagus [Unknown]
  - Impaired gastric emptying [Not Recovered/Not Resolved]
  - Sprue-like enteropathy [Recovering/Resolving]
  - Diverticulum intestinal [Unknown]
  - Haemorrhoids [Unknown]
  - Hiatus hernia [Recovered/Resolved]
  - Oesophageal stenosis [Unknown]

NARRATIVE: CASE EVENT DATE: 20070101
